FAERS Safety Report 7076122-6 (Version None)
Quarter: 2010Q4

REPORT INFORMATION
  Report Type: 
  Country: None (occurrence: None)
  Receive Date: 20101021
  Receipt Date: 20101011
  Transmission Date: 20110411
  Serious: Yes (Life-Threatening, Hospitalization)
  Sender: FDA-Public Use
  Company Number: 726790

PATIENT
  Age: 13 Year
  Sex: Female
  Weight: 50 kg

DRUGS (7)
  1. BUPIVACAINE HYDROCHLORIDE [Suspect]
     Dosage: .5 MG/KG MILLIGRAM (S)/KILOGRAM, (UNKOWN) INTRAVENOUS (NOT OTHERWISE SPECIFIED)
     Route: 042
  2. PROPOFOL [Concomitant]
  3. FENTANYL CITRATE [Concomitant]
  4. ISOFLURANE [Concomitant]
  5. (OXYGEN) [Concomitant]
  6. (ATRACURIUM) [Concomitant]
  7. (NITROUS OXIDE) [Concomitant]

REACTIONS (8)
  - ELECTROCARDIOGRAM QRS COMPLEX PROLONGED [None]
  - ELECTROCARDIOGRAM ST SEGMENT DEPRESSION [None]
  - HYPOPERFUSION [None]
  - HYPOTENSION [None]
  - PULMONARY OEDEMA [None]
  - SINUS TACHYCARDIA [None]
  - VENTRICULAR TACHYCARDIA [None]
  - WRONG DRUG ADMINISTERED [None]
